FAERS Safety Report 9423520 (Version 4)
Quarter: 2013Q4

REPORT INFORMATION
  Report Type: Spontaneous
  Country: US (occurrence: US)
  Receive Date: 20130724
  Receipt Date: 20131004
  Transmission Date: 20140711
  Serious: Yes (Other)
  Sender: FDA-Public Use
  Company Number: US-PFIZER INC-2013213228

PATIENT
  Sex: Female

DRUGS (5)
  1. ALENDRONIC ACID [Suspect]
     Dosage: UNK
  2. CELEBREX [Suspect]
     Dosage: UNK
  3. DICLOFENAC [Suspect]
     Dosage: UNK
  4. MELOXICAM [Suspect]
     Dosage: UNK
  5. RELPAX [Suspect]
     Dosage: UNK

REACTIONS (6)
  - Multiple fractures [Unknown]
  - Fall [Unknown]
  - Confusional state [Unknown]
  - Bronchitis [Unknown]
  - Pain [Unknown]
  - Drug ineffective [Unknown]
